FAERS Safety Report 5806482-2 (Version None)
Quarter: 2008Q3

REPORT INFORMATION
  Report Type: 
  Country: None (occurrence: None)
  Receive Date: 20080710
  Receipt Date: 20070718
  Transmission Date: 20090109
  Serious: No
  Sender: FDA-Public Use
  Company Number: US-BAYER-US-2007-026113

PATIENT
  Age: 72 Year
  Sex: Female
  Weight: 61 kg

DRUGS (7)
  1. CAMPATH [Suspect]
     Indication: CHRONIC LYMPHOCYTIC LEUKAEMIA
     Route: 058
     Dates: start: 20070709, end: 20070713
  2. CAMPATH [Suspect]
     Route: 058
     Dates: start: 20070716
  3. TYLENOL [Concomitant]
     Indication: PREMEDICATION
     Route: 048
     Dates: start: 20070709
  4. BENADRYL ^WARNER-LAMBERT^ /USA/ [Concomitant]
     Indication: PREMEDICATION
     Route: 048
     Dates: start: 20070709
  5. GLIPIZIDE [Concomitant]
     Dosage: UNIT DOSE: 2.5 MG
     Route: 048
  6. PREVACID [Concomitant]
     Dosage: UNIT DOSE: 30 MG
     Route: 048
  7. VITAMIN B-12 [Concomitant]
     Dosage: UNIT DOSE: 500 MG
     Route: 048

REACTIONS (2)
  - INJECTION SITE INFLAMMATION [None]
  - INJECTION SITE PAIN [None]
